FAERS Safety Report 7687094-5 (Version None)
Quarter: 2011Q3

REPORT INFORMATION
  Report Type: 
  Country: None (occurrence: None)
  Receive Date: 20110816
  Receipt Date: 20110803
  Transmission Date: 20111222
  Serious: Yes (Death, Hospitalization)
  Sender: FDA-Public Use
  Company Number: PHHO2011ES13213

PATIENT
  Sex: Male
  Weight: 77 kg

DRUGS (6)
  1. ASPIRIN [Concomitant]
     Indication: CARDIOVASCULAR EVENT PROPHYLAXIS
     Dosage: 150 MG, QD
     Dates: start: 20090101, end: 20110730
  2. ARCAPTA [Suspect]
     Indication: CHRONIC OBSTRUCTIVE PULMONARY DISEASE
     Dosage: CODE NOT BROKEN
     Dates: start: 20110622, end: 20110730
  3. BLINDED SERETIDE [Suspect]
     Indication: CHRONIC OBSTRUCTIVE PULMONARY DISEASE
     Dosage: CODE NOT BROKEN
     Dates: start: 20110622, end: 20110730
  4. URSOBILANE [Concomitant]
     Indication: HEPATIC STEATOSIS
     Dosage: 300 MG, QD
     Dates: start: 20090101, end: 20110730
  5. BLINDED NO TREATMENT RECEIVED [Suspect]
     Indication: CHRONIC OBSTRUCTIVE PULMONARY DISEASE
     Dosage: CODE NOT BROKEN
     Dates: start: 20110622, end: 20110730
  6. ALBUTEROL [Concomitant]
     Indication: CHRONIC OBSTRUCTIVE PULMONARY DISEASE
     Dosage: 100 MG, ON DEMAND
     Dates: start: 20110607, end: 20110730

REACTIONS (1)
  - ACUTE MYOCARDIAL INFARCTION [None]
